FAERS Safety Report 23340667 (Version 1)
Quarter: 2023Q4

REPORT INFORMATION
  Report Type: Spontaneous
  Country: JP (occurrence: JP)
  Receive Date: 20231227
  Receipt Date: 20231227
  Transmission Date: 20240110
  Serious: Yes (Hospitalization, Other)
  Sender: FDA-Public Use
  Company Number: JP-STERISCIENCE B.V.-2023-ST-002240

PATIENT
  Age: 85 Year
  Sex: Female

DRUGS (5)
  1. MEROPENEM [Suspect]
     Active Substance: MEROPENEM
     Indication: Liver abscess
     Dosage: UNK
     Route: 065
  2. CIPROFLOXACIN HYDROCHLORIDE [Suspect]
     Active Substance: CIPROFLOXACIN HYDROCHLORIDE
     Indication: Antibiotic prophylaxis
     Dosage: UNK
     Route: 048
  3. THROMBOMODULIN ALFA [Concomitant]
     Active Substance: THROMBOMODULIN ALFA
     Indication: Disseminated intravascular coagulation
     Dosage: UNK
     Route: 065
  4. METRONIDAZOLE [Concomitant]
     Active Substance: METRONIDAZOLE
     Indication: Liver abscess
     Dosage: 1.5 GRAM, QD
     Route: 048
  5. METRONIDAZOLE [Concomitant]
     Active Substance: METRONIDAZOLE
     Indication: Bacterial infection

REACTIONS (3)
  - Bacterial infection [Unknown]
  - Liver abscess [Unknown]
  - Drug ineffective [Unknown]
